FAERS Safety Report 6527819-5 (Version None)
Quarter: 2010Q1

REPORT INFORMATION
  Report Type: 
  Country: None (occurrence: None)
  Receive Date: 20100105
  Receipt Date: 20100105
  Transmission Date: 20100710
  Serious: Yes (Other)
  Sender: FDA-Public Use
  Company Number: None

PATIENT
  Age: 27 Year
  Sex: Male
  Weight: 93.441 kg

DRUGS (1)
  1. LEVOTHYROXINE SODIUM [Suspect]
     Dosage: 150 MCG 1 QID
     Dates: start: 20080201, end: 20080301

REACTIONS (4)
  - ABDOMINAL DISCOMFORT [None]
  - HYPERTENSION [None]
  - MIGRAINE [None]
  - PRODUCT SUBSTITUTION ISSUE [None]
